FAERS Safety Report 9248580 (Version 1)
Quarter: 2013Q1

REPORT INFORMATION
  Report Type: Spontaneous
  Country: US (occurrence: None)
  Receive Date: 20121113
  Receipt Date: 20121113
  Transmission Date: 20140127
  Serious: Yes (Other)
  Sender: FDA-Public Use
  Company Number: 2012-01346

PATIENT
  Age: 11 Year
  Sex: Female

DRUGS (1)
  1. CEFTRIAXONE (UNKNOWN) [Suspect]
     Indication: CHORIOMENINGITIS LYMPHOCYTIC
     Dosage: UNKNOWN (UNKNOWN, UNK) , UNKNOWN

REACTIONS (1)
  - Haemolytic anaemia [None]
